FAERS Safety Report 4747548-8 (Version None)
Quarter: 2005Q3

REPORT INFORMATION
  Report Type: 
  Country: None (occurrence: None)
  Receive Date: 20050818
  Receipt Date: 20040707
  Transmission Date: 20060218
  Serious: No
  Sender: FDA-Public Use
  Company Number: US-BRISTOL-MYERS SQUIBB COMPANY-12634408

PATIENT
  Age: 73 Year
  Sex: Female
  Weight: 82 kg

DRUGS (6)
  1. TEQUIN [Suspect]
     Indication: BRONCHITIS
     Route: 048
     Dates: start: 20040707
  2. CAPTOPRIL [Concomitant]
  3. LOVASTATIN [Concomitant]
  4. AMIODARONE [Concomitant]
  5. SYNTHROID [Concomitant]
  6. COUMADIN [Concomitant]

REACTIONS (2)
  - DRY MOUTH [None]
  - NERVOUSNESS [None]
